FAERS Safety Report 23017689 (Version 2)
Quarter: 2024Q2

REPORT INFORMATION
  Report Type: Spontaneous
  Country: SE (occurrence: SE)
  Receive Date: 20231003
  Receipt Date: 20240409
  Transmission Date: 20240716
  Serious: Yes (Other)
  Sender: FDA-Public Use
  Company Number: None

PATIENT
  Age: 62 Year
  Sex: Female

DRUGS (4)
  1. EVENITY [Suspect]
     Active Substance: ROMOSOZUMAB-AQQG
     Indication: Osteoporosis
     Dosage: 210 MILLIGRAM, MONTHLY (QM) (2 INJECTIONS ONCE A MONTH FOR 12 MONTHS)
     Route: 058
     Dates: start: 20221206
  2. EVENITY [Suspect]
     Active Substance: ROMOSOZUMAB-AQQG
     Dosage: 210 MILLIGRAM, MONTHLY (QM) (2 INJECTIONS ONCE A MONTH FOR 12 MONTHS)
     Route: 058
     Dates: start: 20230830
  3. ENTOCORT [Concomitant]
     Active Substance: BUDESONIDE
     Indication: Product used for unknown indication
     Dosage: 3 MG
     Route: 048
  4. ENTOCORT [Concomitant]
     Active Substance: BUDESONIDE
     Dosage: 3 MILLIGRAM, PER DAY
     Route: 048

REACTIONS (2)
  - Malignant palate neoplasm [Unknown]
  - Malignant melanoma of sites other than skin [Unknown]

NARRATIVE: CASE EVENT DATE: 20230413
